FAERS Safety Report 6305573-X (Version None)
Quarter: 2009Q3

REPORT INFORMATION
  Report Type: 
  Country: None (occurrence: None)
  Receive Date: 20090807
  Receipt Date: 20090723
  Transmission Date: 20100115
  Serious: Yes (Other)
  Sender: FDA-Public Use
  Company Number: ADE2009-0765

PATIENT
  Age: 74 Year
  Sex: Female

DRUGS (5)
  1. SIMVASTATIN [Suspect]
     Indication: BLOOD CHOLESTEROL INCREASED
     Dosage: 20MG - NIGHTLY- ORAL
     Route: 048
     Dates: end: 20090620
  2. ASPIRIN [Concomitant]
  3. CANDESARTAN CILEXETIL [Concomitant]
  4. CEPHALEXIN [Concomitant]
  5. ACETAMINOPHEN [Concomitant]

REACTIONS (1)
  - BLADDER CANCER [None]
